FAERS Safety Report 12107628 (Version 2)
Quarter: 2016Q1

REPORT INFORMATION
  Report Type: Spontaneous
  Country: US (occurrence: US)
  Receive Date: 20160224
  Receipt Date: 20160322
  Transmission Date: 20160526
  Serious: No
  Sender: FDA-Public Use
  Company Number: US-JNJFOC-20160200844

PATIENT
  Age: 43 Year
  Sex: Female

DRUGS (1)
  1. INVOKANA [Suspect]
     Active Substance: CANAGLIFLOZIN
     Indication: PRODUCT USED FOR UNKNOWN INDICATION
     Route: 048

REACTIONS (6)
  - Drug dose omission [Unknown]
  - Treatment noncompliance [Unknown]
  - Genital infection fungal [Unknown]
  - Fungal infection [Recovered/Resolved]
  - Adverse event [Unknown]
  - Blood glucose increased [Unknown]
